FAERS Safety Report 6632118-7 (Version None)
Quarter: 2010Q1

REPORT INFORMATION
  Report Type: 
  Country: None (occurrence: None)
  Receive Date: 20100312
  Receipt Date: 20100309
  Transmission Date: 20100710
  Serious: Yes (Other)
  Sender: FDA-Public Use
  Company Number: GB-BAXTER-2010BH003028

PATIENT
  Age: 45 Year
  Sex: Female

DRUGS (4)
  1. CYCLOPHOSPHAMIDE [Suspect]
     Indication: COLORECTAL CANCER
     Route: 042
     Dates: start: 20091103, end: 20091104
  2. MFEZ [Suspect]
     Indication: COLORECTAL CANCER
     Route: 042
     Dates: start: 20091110, end: 20091110
  3. FLUDARABINE [Suspect]
     Indication: COLORECTAL CANCER
     Route: 042
     Dates: start: 20091105, end: 20091109
  4. INTERLEUKIN-2 [Suspect]
     Indication: COLORECTAL CANCER
     Route: 040
     Dates: start: 20091111, end: 20091112

REACTIONS (6)
  - DYSPNOEA [None]
  - HYPOTENSION [None]
  - HYPOXIA [None]
  - OXYGEN SATURATION DECREASED [None]
  - RESPIRATORY RATE INCREASED [None]
  - TACHYCARDIA [None]
